FAERS Safety Report 7681724-X (Version None)
Quarter: 2011Q3

REPORT INFORMATION
  Report Type: 
  Country: None (occurrence: None)
  Receive Date: 20110812
  Receipt Date: 20110809
  Transmission Date: 20111222
  Serious: Yes (Hospitalization, Other)
  Sender: FDA-Public Use
  Company Number: CN-ABBOTT-11P-035-0837255-00

PATIENT
  Sex: Male

DRUGS (1)
  1. PERINDOPRIL ERBUMINE [Suspect]
     Indication: HYPERTENSION
     Route: 048
     Dates: start: 20110601, end: 20110601

REACTIONS (2)
  - POOR QUALITY DRUG ADMINISTERED [None]
  - BLOOD PRESSURE INCREASED [None]
